FAERS Safety Report 12767139 (Version 1)
Quarter: 2016Q3

REPORT INFORMATION
  Report Type: Spontaneous
  Country: IT (occurrence: IT)
  Receive Date: 20160921
  Receipt Date: 20160921
  Transmission Date: 20161109
  Serious: Yes (Other)
  Sender: FDA-Public Use
  Company Number: IT-TEVA-693139ACC

PATIENT
  Age: 71 Year
  Sex: Female

DRUGS (5)
  1. ONDANSETRON [Concomitant]
     Active Substance: ONDANSETRON
     Indication: PRODUCT USED FOR UNKNOWN INDICATION
     Dosage: 8 MG
     Dates: start: 20160906, end: 20160906
  2. CARBOPLATINO TEVA - 10 MG/ML - TEVA PHARMA B.V. [Suspect]
     Active Substance: CARBOPLATIN
     Indication: OVARIAN NEOPLASM
     Dosage: 26.2 MG CYCLICAL
     Route: 041
     Dates: start: 20160906, end: 20160906
  3. RANITIDINE. [Concomitant]
     Active Substance: RANITIDINE
     Indication: PRODUCT USED FOR UNKNOWN INDICATION
     Dosage: 50 MG
     Dates: start: 20160906, end: 20160906
  4. DEXAMETHASONE PHOSPHATE [Concomitant]
     Active Substance: DEXAMETHASONE PHOSPHATE
     Indication: PRODUCT USED FOR UNKNOWN INDICATION
     Dosage: 8 MG
     Dates: start: 20160906, end: 20160906
  5. CARBOPLATINO TEVA - 10 MG/ML - TEVA PHARMA B.V. [Suspect]
     Active Substance: CARBOPLATIN
     Indication: OVARIAN NEOPLASM
     Dosage: 450 MG CYCLICAL
     Route: 041
     Dates: start: 20160906, end: 20160906

REACTIONS (4)
  - Erythema [Recovered/Resolved]
  - Band sensation [Recovered/Resolved]
  - Lacrimation increased [Recovered/Resolved]
  - Lip oedema [Recovered/Resolved]

NARRATIVE: CASE EVENT DATE: 20160906
